FAERS Safety Report 22014202 (Version 3)
Quarter: 2023Q2

REPORT INFORMATION
  Report Type: Other
  Country: CN (occurrence: None)
  Receive Date: 20230221
  Receipt Date: 20230522
  Transmission Date: 20230722
  Serious: Yes (Other)
  Sender: FDA-Public Use
  Company Number: CN-ROCHE-2987255

PATIENT
  Age: 69 Year
  Sex: Male
  Weight: 66 kg

DRUGS (4)
  1. ALECTINIB [Suspect]
     Active Substance: ALECTINIB
     Indication: Non-small cell lung cancer
     Dosage: DOSE LAST STUDY DRUG ADMIN PRIOR AE IS 600 MG ON 21/SEP/2021
     Route: 048
     Dates: start: 20210916
  2. PEMETREXED [Concomitant]
     Active Substance: PEMETREXED
     Dates: start: 20211125, end: 20211125
  3. ALECTINIB [Concomitant]
     Active Substance: ALECTINIB
     Indication: Lung neoplasm malignant
     Dates: start: 20210720
  4. BEVACIZUMAB [Concomitant]
     Active Substance: BEVACIZUMAB
     Indication: Neoplasm
     Route: 042
     Dates: start: 20220507, end: 20220507

REACTIONS (6)
  - Renal impairment [Not Recovered/Not Resolved]
  - Hypokalaemia [Not Recovered/Not Resolved]
  - Aspartate aminotransferase increased [Recovered/Resolved]
  - Alanine aminotransferase increased [Recovered/Resolved]
  - Blood bilirubin increased [Recovered/Resolved]
  - Hypertriglyceridaemia [Not Recovered/Not Resolved]

NARRATIVE: CASE EVENT DATE: 20210916
